FAERS Safety Report 5713159-0 (Version None)
Quarter: 2008Q2

REPORT INFORMATION
  Report Type: 
  Country: None (occurrence: None)
  Receive Date: 20080422
  Receipt Date: 20080416
  Transmission Date: 20081010
  Serious: Yes (Hospitalization)
  Sender: FDA-Public Use
  Company Number: FR-JNJFOC-20080404549

PATIENT
  Sex: Female

DRUGS (13)
  1. RISPERDAL [Suspect]
     Indication: CONFUSIONAL STATE
     Route: 048
     Dates: start: 20070323, end: 20070328
  2. OXAZEPAM [Suspect]
     Indication: SLEEP DISORDER
     Route: 048
     Dates: start: 20070323, end: 20070329
  3. CARDENSIEL [Suspect]
     Indication: HYPERTENSION
     Route: 048
  4. NITRODERM [Suspect]
     Route: 061
  5. NITRODERM [Suspect]
     Indication: MYOCARDIAL ISCHAEMIA
     Route: 061
  6. ESIDRIX [Suspect]
     Indication: HYPERTENSION
     Route: 048
  7. IRBESARTAN [Suspect]
     Indication: HYPERTENSION
     Route: 048
  8. ADANCOR [Suspect]
     Indication: MYOCARDIAL ISCHAEMIA
     Route: 048
  9. ACTISKENAN [Concomitant]
     Indication: OSTEOPOROTIC FRACTURE
     Route: 048
  10. MORPHINE SUL INJ [Concomitant]
     Route: 048
  11. MORPHINE SUL INJ [Concomitant]
     Indication: OSTEOPOROTIC FRACTURE
     Route: 048
  12. PERSANTINE [Concomitant]
     Route: 048
  13. DAFALGAN [Concomitant]

REACTIONS (7)
  - ATRIOVENTRICULAR BLOCK FIRST DEGREE [None]
  - BRADYCARDIA [None]
  - BRONCHIAL DISORDER [None]
  - DIVERTICULUM INTESTINAL [None]
  - ERYSIPELAS [None]
  - HYPOTHERMIA [None]
  - LOCKED-IN SYNDROME [None]
